FAERS Safety Report 4296496-9 (Version None)
Quarter: 2004Q1

REPORT INFORMATION
  Report Type: 
  Country: None (occurrence: None)
  Receive Date: 20040129
  Receipt Date: 20030401
  Transmission Date: 20041129
  Serious: No
  Sender: FDA-Public Use
  Company Number: 200208448

PATIENT
  Age: 67 Year
  Sex: Male
  Weight: 67 kg

DRUGS (10)
  1. ALBUMINAR-25 [Suspect]
     Dosage: IV  ; 50 ML ONCE IV
     Route: 042
     Dates: start: 20020709, end: 20020709
  2. ALBUMINAR-25 [Suspect]
     Dosage: IV  ; 50 ML ONCE IV
     Route: 042
     Dates: start: 20020710, end: 20020710
  3. ALBUMINAR-25 [Suspect]
     Dosage: IV  ; 50 ML ONCE IV
     Route: 042
     Dates: start: 20020711, end: 20020711
  4. ALBUMINAR-25 [Suspect]
     Dosage: IV  ; 50 ML ONCE IV
     Route: 042
     Dates: start: 20020712, end: 20020712
  5. ALBUMINAR-25 [Suspect]
     Dosage: IV  ; 50 ML ONCE IV
     Route: 042
     Dates: start: 20020713, end: 20020713
  6. ALBUMINAR-25 [Suspect]
     Dosage: IV  ; 50 ML ONCE IV
     Route: 042
     Dates: start: 20020715, end: 20020715
  7. ALBUMINAR-25 [Suspect]
     Dosage: IV  ; 50 ML ONCE IV
     Route: 042
     Dates: start: 20020717, end: 20020717
  8. ALBUMINAR-25 [Suspect]
     Dosage: IV  ; 50 ML ONCE IV
     Route: 042
     Dates: start: 20020719, end: 20020719
  9. ALBUMINAR-25 [Suspect]
     Dosage: IV  ; 50 ML ONCE IV
     Route: 042
     Dates: start: 20020722, end: 20020722
  10. ALBUMINAR-25 [Suspect]
     Dates: start: 20020724, end: 20020724

REACTIONS (7)
  - BLOOD PRESSURE DECREASED [None]
  - DYSKINESIA [None]
  - FLUSHING [None]
  - HEADACHE [None]
  - OXYGEN SATURATION DECREASED [None]
  - RESTLESSNESS [None]
  - TACHYCARDIA [None]
